FAERS Safety Report 9713790 (Version 3)
Quarter: 2013Q4

REPORT INFORMATION
  Report Type: Report from Study
  Country: US (occurrence: US)
  Receive Date: 20131126
  Receipt Date: 20131211
  Transmission Date: 20140711
  Serious: Yes (Death, Hospitalization)
  Sender: FDA-Public Use
  Company Number: US-SA-2013SA108616

PATIENT
  Age: 54 Year
  Sex: Male
  Weight: 63.2 kg

DRUGS (25)
  1. ZALTRAP [Suspect]
     Route: 065
     Dates: start: 20130829, end: 20130829
  2. ZALTRAP [Suspect]
     Dosage: TOTAL DOSE 396 MG
     Route: 065
     Dates: start: 20131008, end: 20131008
  3. CAPECITABINE [Suspect]
     Route: 065
     Dates: start: 20130829, end: 20130829
  4. CAPECITABINE [Suspect]
     Dosage: TOTAL DOSE 1500 BID
     Route: 065
     Dates: start: 20131008, end: 20131008
  5. CAPECITABINE [Suspect]
     Route: 065
     Dates: start: 20131019, end: 20131019
  6. TYLENOL [Concomitant]
     Dosage: TAKE 1000 MG BY MOUTH EVERY 6 HRS
  7. NORVASC [Concomitant]
  8. XELODA [Concomitant]
     Dosage: 4 TAB IN AM AND 4 TAB IN PM BY MOUTH WITH WATER AFTER MEAL. 1-14. OFF DAYS 15-21.
     Route: 048
  9. CELEXA [Concomitant]
     Route: 048
  10. DECADRON [Concomitant]
     Dosage: WITH FOOD
  11. DECADRON [Concomitant]
     Dosage: WITH FOOD
  12. DURAGESIC [Concomitant]
     Dosage: APPLY TO SKIN Q 72 HOURS
  13. LASIX [Concomitant]
     Route: 048
  14. NEURONTIN [Concomitant]
     Route: 048
  15. HYDROCORTISONE [Concomitant]
  16. DILAUDID [Concomitant]
     Indication: PAIN
     Dosage: 1-2 TABLET, Q 4 HOURS
     Route: 048
  17. LIDODERM [Concomitant]
  18. ZOFRAN [Concomitant]
     Dosage: EVERY EIGHT HOURS WHEN NEEDED
  19. PROTONIX [Concomitant]
     Route: 048
  20. COMPAZINE [Concomitant]
     Indication: NAUSEA
     Route: 048
  21. COMPAZINE [Concomitant]
     Indication: VOMITING
     Route: 048
  22. SENOKOT-S [Concomitant]
     Dosage: 8.6-50 MG
  23. VIAGRA [Concomitant]
     Dosage: 1 HOUR BEFORE INTERCOURSE AS NEEDED
  24. DESYREL [Concomitant]
     Route: 048
  25. ALL OTHER THERAPEUTIC PRODUCTS [Concomitant]
     Dosage: 10 ML SWISHA ND SWALLOW QID PRN
     Route: 048

REACTIONS (4)
  - Exposed bone in jaw [Unknown]
  - Sepsis [Recovered/Resolved]
  - Abdominal pain [Not Recovered/Not Resolved]
  - Disease progression [Fatal]
